FAERS Safety Report 8438577-1 (Version None)
Quarter: 2012Q2

REPORT INFORMATION
  Report Type: 
  Country: None (occurrence: None)
  Receive Date: 20120615
  Receipt Date: 20120611
  Transmission Date: 20120825
  Serious: No
  Sender: FDA-Public Use
  Company Number: US-PFIZER INC-2012093146

PATIENT
  Sex: Male

DRUGS (3)
  1. VIAGRA [Suspect]
     Dosage: UNK
     Route: 048
     Dates: start: 20100801, end: 20100801
  2. VIAGRA [Suspect]
     Dosage: UNK
     Route: 048
     Dates: start: 20110801, end: 20110801
  3. VIAGRA [Suspect]
     Indication: ERECTILE DYSFUNCTION
     Dosage: UNK
     Route: 048
     Dates: start: 20100101, end: 20100101

REACTIONS (6)
  - CONSTIPATION [None]
  - MALAISE [None]
  - ABDOMINAL PAIN [None]
  - VOMITING [None]
  - DRUG INEFFECTIVE [None]
  - NAUSEA [None]
